FAERS Safety Report 25116757 (Version 4)
Quarter: 2025Q2

REPORT INFORMATION
  Report Type: Report from Study
  Country: TR (occurrence: TR)
  Receive Date: 20250325
  Receipt Date: 20250531
  Transmission Date: 20250717
  Serious: Yes (Hospitalization)
  Sender: ABBVIE
  Company Number: TR-ABBVIE-6188288

PATIENT
  Age: 72 Year
  Sex: Male
  Weight: 75 kg

DRUGS (5)
  1. CARBIDOPA\LEVODOPA [Suspect]
     Active Substance: CARBIDOPA\LEVODOPA
     Indication: Parkinson^s disease
     Route: 050
     Dates: start: 20181226, end: 20250516
  2. CARBIDOPA\LEVODOPA [Suspect]
     Active Substance: CARBIDOPA\LEVODOPA
  3. ASPIRIN [Concomitant]
     Active Substance: ASPIRIN
     Indication: Hypertension
     Dosage: FORM STRENGTH: 100 MILLIGRAM?STOP DATE TEXT: UNKNOWN
     Route: 048
     Dates: start: 2010
  4. BENSERAZIDE HYDROCHLORIDE\LEVODOPA [Concomitant]
     Active Substance: BENSERAZIDE HYDROCHLORIDE\LEVODOPA
     Indication: Parkinson^s disease
     Route: 048
     Dates: start: 2016
  5. MICARDIS HCT [Concomitant]
     Active Substance: HYDROCHLOROTHIAZIDE\TELMISARTAN
     Indication: Hypertension
     Dosage: 80 MILLIGRAM?STOP DATE TEXT: UNKNOWN
     Route: 048
     Dates: start: 2010

REACTIONS (5)
  - Respiratory distress [Recovered/Resolved]
  - Renal failure [Recovered/Resolved]
  - Respiratory failure [Recovered/Resolved]
  - Skeletal injury [Not Recovered/Not Resolved]
  - Weight decreased [Recovering/Resolving]

NARRATIVE: CASE EVENT DATE: 20250317
